FAERS Safety Report 4867052-6 (Version None)
Quarter: 2005Q4

REPORT INFORMATION
  Report Type: 
  Country: None (occurrence: None)
  Receive Date: 20051222
  Receipt Date: 20051214
  Transmission Date: 20060501
  Serious: Yes (Hospitalization)
  Sender: FDA-Public Use
  Company Number: 2005-12-0626

PATIENT
  Age: 75 Year
  Sex: Male

DRUGS (6)
  1. INTEGRILIN [Suspect]
     Dosage: SEE IMAGE
     Route: 042
     Dates: start: 20051128
  2. INTEGRILIN [Suspect]
     Dosage: SEE IMAGE
     Route: 042
     Dates: start: 20051128
  3. LOVENOX [Suspect]
     Dosage: 160  MG QD SUBCUTANEOUS
     Route: 058
     Dates: start: 20051126, end: 20051128
  4. HEPARIN SODIUM [Suspect]
     Dosage: INTRAVENOUS
     Route: 042
     Dates: start: 20051123, end: 20051126
  5. PLAVIX [Suspect]
     Dosage: 2 TABLETS QD ORAL
     Route: 048
     Dates: start: 20051123
  6. ACETYLSALICYLIC ACID SRT [Suspect]
     Dosage: 300 MG QD ORAL
     Route: 048
     Dates: start: 20051123

REACTIONS (4)
  - BLOOD BLISTER [None]
  - DERMATITIS BULLOUS [None]
  - PETECHIAE [None]
  - THROMBOCYTOPENIA [None]
